FAERS Safety Report 6213370-9 (Version None)
Quarter: 2009Q2

REPORT INFORMATION
  Report Type: 
  Country: None (occurrence: None)
  Receive Date: 20090603
  Receipt Date: 20090417
  Transmission Date: 20091009
  Serious: No
  Sender: FDA-Public Use
  Company Number: US-BAYER-200918647NA

PATIENT
  Age: 44 Year
  Sex: Male

DRUGS (2)
  1. AVELOX [Suspect]
     Indication: RESPIRATORY TRACT CONGESTION
     Dates: start: 20090414, end: 20090417
  2. PRILOSEC [Concomitant]

REACTIONS (5)
  - COORDINATION ABNORMAL [None]
  - DRY MOUTH [None]
  - DYSPHAGIA [None]
  - PRURITUS [None]
  - THIRST [None]
